FAERS Safety Report 5394007-8 (Version None)
Quarter: 2007Q3

REPORT INFORMATION
  Report Type: 
  Country: None (occurrence: None)
  Receive Date: 20070723
  Receipt Date: 20070108
  Transmission Date: 20080115
  Serious: No
  Sender: FDA-Public Use
  Company Number: A0634808A

PATIENT
  Sex: Female

DRUGS (1)
  1. AVANDIA [Suspect]
     Indication: DRUG USE FOR UNKNOWN INDICATION
     Route: 048
     Dates: end: 20050101

REACTIONS (3)
  - MALAISE [None]
  - SWELLING [None]
  - WEIGHT INCREASED [None]
